FAERS Safety Report 8986777 (Version 2)
Quarter: 2013Q1

REPORT INFORMATION
  Report Type: Spontaneous
  Country: RO (occurrence: RO)
  Receive Date: 20121227
  Receipt Date: 20130101
  Transmission Date: 20140127
  Serious: Yes (Other)
  Sender: FDA-Public Use
  Company Number: RO-AMGEN-ROUSP2012082432

PATIENT
  Age: 29 Year
  Sex: Male

DRUGS (4)
  1. ENBREL [Suspect]
     Indication: ANKYLOSING SPONDYLITIS
     Dosage: 50 MG, WEEKLY
     Route: 058
     Dates: start: 2008, end: 2009
  2. ENBREL [Suspect]
     Dosage: 50 MG, WEEKLY
     Route: 058
     Dates: start: 201103, end: 201112
  3. ENBREL [Suspect]
     Dosage: 50 MG, WEEKLY
     Route: 058
     Dates: start: 201202
  4. PREDNISONE [Concomitant]
     Indication: ANKYLOSING SPONDYLITIS
     Dosage: 10 MG, 1X/DAY

REACTIONS (7)
  - Pupillary disorder [Not Recovered/Not Resolved]
  - Cataract [Not Recovered/Not Resolved]
  - Osteoarthritis [Unknown]
  - Visual acuity reduced [Not Recovered/Not Resolved]
  - Iridocyclitis [Not Recovered/Not Resolved]
  - No therapeutic response [Not Recovered/Not Resolved]
  - Pulmonary tuberculosis [Unknown]
